FAERS Safety Report 6638028-3 (Version None)
Quarter: 2010Q1

REPORT INFORMATION
  Report Type: 
  Country: None (occurrence: None)
  Receive Date: 20100317
  Receipt Date: 20100304
  Transmission Date: 20100710
  Serious: Yes (Other)
  Sender: FDA-Public Use
  Company Number: US-PFIZER INC-2010031041

PATIENT
  Sex: Male

DRUGS (22)
  1. LYRICA [Suspect]
     Indication: NEUROPATHY PERIPHERAL
     Dosage: 300 MG, 1X/DAY
  2. XYREM [Interacting]
     Indication: SOMNOLENCE
     Dosage: 4.5 G, 1X/DAY AT NIGHT
     Dates: start: 20010312
  3. ZOLOFT [Concomitant]
     Indication: ANXIETY
     Dosage: 100 MG, 2X/DAY
  4. ZOLOFT [Concomitant]
     Indication: PANIC ATTACK
  5. LIPITOR [Concomitant]
     Indication: BLOOD CHOLESTEROL INCREASED
     Dosage: 100 MG, 1X/DAY
  6. LIPITOR [Concomitant]
     Indication: BLOOD TRIGLYCERIDES INCREASED
  7. SINEMET [Concomitant]
     Indication: RAPID EYE MOVEMENTS SLEEP ABNORMAL
     Dosage: 50/200 MG DAILY
  8. SINEMET [Concomitant]
     Indication: PERIODIC LIMB MOVEMENT DISORDER
  9. PROVIGIL [Concomitant]
     Indication: SOMNOLENCE
     Dosage: 200 MG, 2X/DAY
  10. FENTANYL [Concomitant]
     Indication: NEUROPATHY PERIPHERAL
     Dosage: 100 MCG/HR CHANGED EVERY 48 HOURS
  11. FENTANYL [Concomitant]
     Indication: PAIN IN EXTREMITY
  12. PREDNISONE [Concomitant]
     Indication: ENCEPHALOPATHY
     Dosage: 13 MG, 1X/DAY
  13. BACTRIM [Concomitant]
     Dosage: 400/80MG DAILY
  14. CELLCEPT [Concomitant]
     Dosage: 1500 MG, 2X/DAY
  15. ROXICODONE [Concomitant]
     Indication: NEUROPATHY PERIPHERAL
     Dosage: UP TO 3 DAILY (30MG TABS) AS NEEDED
  16. ALPRAZOLAM [Concomitant]
     Indication: ANXIETY
     Dosage: UP TO 4 TABS ( 1MG TABS) DAILY AS NEEDED
  17. ALPRAZOLAM [Concomitant]
     Indication: PANIC ATTACK
  18. NITROGLYCERIN [Concomitant]
     Indication: PRINZMETAL ANGINA
     Dosage: 400 MCG/SPR AS NEEDED
  19. LOVAZA [Concomitant]
     Dosage: 1000 MG, 3X/DAY
  20. CALCIUM WITH VITAMIN D [Concomitant]
     Dosage: 600MG/400 IU TWICE DAILY
  21. MULTI-VITAMINS [Concomitant]
     Dosage: 1 TABLET DAILY
  22. ACIDOPHILUS [Concomitant]
     Dosage: 1 DAILY

REACTIONS (6)
  - ANXIETY [None]
  - DRUG INTERACTION [None]
  - DRUG WITHDRAWAL SYNDROME [None]
  - INSOMNIA [None]
  - NEURALGIA [None]
  - SOMNOLENCE [None]
